FAERS Safety Report 6428608-2 (Version None)
Quarter: 2009Q4

REPORT INFORMATION
  Report Type: 
  Country: None (occurrence: None)
  Receive Date: 20091104
  Receipt Date: 20091104
  Transmission Date: 20100525
  Serious: No
  Sender: FDA-Public Use
  Company Number: None

PATIENT
  Age: 61 Year
  Sex: Male

DRUGS (1)
  1. SULFAMETHOXAZOLE AND TRIMETHOPRIM [Suspect]
     Indication: SINUSITIS
     Dosage: 1 TABLET MG BID PO
     Route: 048
     Dates: start: 20090916, end: 20090920

REACTIONS (3)
  - DYSPNOEA [None]
  - LIP SWELLING [None]
  - SWELLING FACE [None]
